FAERS Safety Report 6886141-8 (Version None)
Quarter: 2010Q3

REPORT INFORMATION
  Report Type: 
  Country: None (occurrence: None)
  Receive Date: 20100729
  Receipt Date: 20080826
  Transmission Date: 20110219
  Serious: No
  Sender: FDA-Public Use
  Company Number: US-PFIZER INC-2008060742

PATIENT
  Sex: Female
  Weight: 68.2 kg

DRUGS (2)
  1. CELEBREX [Suspect]
     Indication: ARTHRALGIA
     Route: 048
     Dates: start: 20041210
  2. CELEBREX [Suspect]
     Indication: BACK PAIN

REACTIONS (1)
  - DRUG INEFFECTIVE [None]
